FAERS Safety Report 11398738 (Version 1)
Quarter: 2015Q3

REPORT INFORMATION
  Report Type: Spontaneous
  Country: US (occurrence: None)
  Receive Date: 20150818
  Receipt Date: 20150818
  Transmission Date: 20151125
  Serious: Yes (Life-Threatening, Hospitalization)
  Sender: FDA-Public Use
  Company Number: None

PATIENT
  Age: 79 Year
  Sex: Female
  Weight: 86.18 kg

DRUGS (1)
  1. TRAMADOL JANSSEN [Suspect]
     Active Substance: TRAMADOL
     Indication: HERPES ZOSTER
     Dosage: 1 PILL
     Route: 048

REACTIONS (3)
  - Screaming [None]
  - Incoherent [None]
  - Blood glucose decreased [None]

NARRATIVE: CASE EVENT DATE: 20150814
